FAERS Safety Report 7954959-6 (Version None)
Quarter: 2011Q4

REPORT INFORMATION
  Report Type: 
  Country: None (occurrence: None)
  Receive Date: 20111202
  Receipt Date: 20111123
  Transmission Date: 20120403
  Serious: Yes (Other)
  Sender: FDA-Public Use
  Company Number: DE-TEVA-310601GER

PATIENT
  Age: 51 Year
  Sex: Male

DRUGS (4)
  1. ASPIRIN [Concomitant]
     Indication: MIGRAINE
     Route: 048
  2. BISOPROLOL FUMARATE [Suspect]
     Indication: HYPERTONIA
     Route: 048
  3. CANDESARTAN CILEXETIL [Suspect]
     Indication: HYPERTONIA
     Route: 048
  4. ACETAMINOPHEN [Concomitant]
     Indication: MIGRAINE
     Route: 048

REACTIONS (1)
  - CATARACT [None]
